FAERS Safety Report 8614954 (Version 2)
Quarter: 2013Q1

REPORT INFORMATION
  Report Type: Spontaneous
  Country: IR (occurrence: None)
  Receive Date: 20120530
  Receipt Date: 20121114
  Transmission Date: 20140127
  Serious: Yes (Other)
  Sender: FDA-Public Use
  Company Number: VAL_00767_2012

PATIENT
  Sex: Female

DRUGS (1)
  1. CALCITRIOL [Suspect]
     Dosage: FOR THREE MONTH (0.5 MG)

REACTIONS (3)
  - BLOOD PRESSURE SYSTOLIC DECREASED [None]
  - BLOOD PARATHYROID HORMONE DECREASED [None]
  - OFF LABEL USE [None]
